FAERS Safety Report 6097446-5 (Version None)
Quarter: 2009Q1

REPORT INFORMATION
  Report Type: 
  Country: None (occurrence: None)
  Receive Date: 20090227
  Receipt Date: 20080506
  Transmission Date: 20090719
  Serious: No
  Sender: FDA-Public Use
  Company Number: A0727923A

PATIENT
  Sex: Female

DRUGS (3)
  1. IMITREX [Suspect]
     Indication: MIGRAINE
     Route: 058
  2. IMITREX [Suspect]
     Route: 048
  3. UNSPECIFIED MEDICATION [Concomitant]

REACTIONS (3)
  - DISCOMFORT [None]
  - OSTEOARTHRITIS [None]
  - PRODUCT QUALITY ISSUE [None]
